FAERS Safety Report 24010906 (Version 1)
Quarter: 2024Q2

REPORT INFORMATION
  Report Type: Report from Study
  Country: BR (occurrence: BR)
  Receive Date: 20240625
  Receipt Date: 20240625
  Transmission Date: 20240716
  Serious: Yes (Hospitalization, Other)
  Sender: FDA-Public Use
  Company Number: BR-ABBVIE-5811840

PATIENT
  Sex: Female
  Weight: 56 kg

DRUGS (10)
  1. SKYRIZI [Suspect]
     Active Substance: RISANKIZUMAB-RZAA
     Indication: Psoriasis
     Route: 058
     Dates: start: 20240223
  2. VENAFLON [Concomitant]
     Indication: Cardiovascular disorder
     Dosage: 1 TABLET, STARTED 2 TO THREE YEARS AGO
     Route: 048
  3. ENALAPRIL MALEATE [Concomitant]
     Active Substance: ENALAPRIL MALEATE
     Indication: Hypertension
     Dosage: 1 TABLET, FORM STRENGTH: 10 MILLIGRAM
     Route: 048
  4. ATENOLOL\CHLORTHALIDONE [Concomitant]
     Active Substance: ATENOLOL\CHLORTHALIDONE
     Indication: Hypertension
     Dosage: 1 TABLET
     Route: 048
     Dates: start: 2023
  5. DEPAKENE [Concomitant]
     Active Substance: VALPROIC ACID
     Indication: Bipolar disorder
     Dosage: 2 CAPSULE, FORM STRENGTH: 250, STARTED 2 OR 3 YEARS AGO
     Route: 048
  6. DIPYRONE [Concomitant]
     Active Substance: DIPYRONE
     Indication: Pain
     Dosage: FORM STRENGTH: 500 MILLIGRAM
     Route: 048
     Dates: start: 202405
  7. QUETIAPINE [Concomitant]
     Active Substance: QUETIAPINE
     Indication: Bipolar disorder
     Dosage: 1 TABLET, STARTED ON 2 OR THREE YEARS AGO
     Route: 048
  8. VENLAFAXINE HYDROCHLORIDE [Concomitant]
     Active Substance: VENLAFAXINE HYDROCHLORIDE
     Indication: Product used for unknown indication
     Dosage: 1 CAPSULE, 37.5
     Route: 048
     Dates: start: 2022
  9. ALPRAZOLAM [Concomitant]
     Active Substance: ALPRAZOLAM
     Indication: Bipolar disorder
     Dosage: 1 TABLET, FORM STRENGTH: 1 MILLIGRAM
     Route: 048
  10. LITHIUM CARBONATE [Concomitant]
     Active Substance: LITHIUM CARBONATE
     Indication: Bipolar disorder
     Dosage: HALF TABLET IN THE MORNING AND HALF AT NIGHT,?FORM STRENGTH: 300 MILLIGRAM
     Route: 048
     Dates: start: 2021

REACTIONS (10)
  - Hypophagia [Recovered/Resolved]
  - Anaemia [Recovered/Resolved]
  - Choking [Recovered/Resolved]
  - Dehydration [Unknown]
  - Parkinson^s disease [Recovering/Resolving]
  - Erythema [Recovered/Resolved]
  - Nausea [Recovered/Resolved]
  - Spinal column injury [Recovering/Resolving]
  - Food aversion [Recovered/Resolved]
  - Pain [Not Recovered/Not Resolved]

NARRATIVE: CASE EVENT DATE: 20240101
